FAERS Safety Report 24894733 (Version 3)
Quarter: 2025Q4

REPORT INFORMATION
  Report Type: Report from Study
  Country: IN (occurrence: IN)
  Receive Date: 20250128
  Receipt Date: 20251003
  Transmission Date: 20260118
  Serious: Yes (Hospitalization)
  Sender: EISAI
  Company Number: IN-Eisai-EC-2025-182767

PATIENT
  Age: 56 Year
  Sex: Male

DRUGS (4)
  1. LENVATINIB [Suspect]
     Active Substance: LENVATINIB
     Indication: Thyroid cancer
     Route: 048
     Dates: start: 202409, end: 2024
  2. LENVATINIB [Suspect]
     Active Substance: LENVATINIB
     Route: 048
     Dates: start: 20250107
  3. LENVATINIB [Suspect]
     Active Substance: LENVATINIB
     Dosage: 4MG OR 8MG OR DID NOT TAKE LENVIMA
     Route: 048
  4. LENVATINIB [Suspect]
     Active Substance: LENVATINIB
     Route: 048
     Dates: start: 2025, end: 2025

REACTIONS (8)
  - Liver disorder [Recovering/Resolving]
  - Renal disorder [Recovering/Resolving]
  - Gallbladder disorder [Recovering/Resolving]
  - Appetite disorder [Recovering/Resolving]
  - Parosmia [Recovering/Resolving]
  - Constipation [Recovering/Resolving]
  - Diarrhoea [Recovering/Resolving]
  - Dizziness [Recovering/Resolving]

NARRATIVE: CASE EVENT DATE: 20240101
